FAERS Safety Report 24292994 (Version 1)
Quarter: 2024Q3

REPORT INFORMATION
  Report Type: Spontaneous
  Country: US (occurrence: None)
  Receive Date: 20240906
  Receipt Date: 20240906
  Transmission Date: 20241017
  Serious: No
  Sender: DOMPE FARMACEUTICI
  Company Number: US-FARMAPROD-202308-202311-3350

PATIENT
  Sex: Female

DRUGS (14)
  1. OXERVATE [Suspect]
     Active Substance: CENEGERMIN-BKBJ
     Indication: Neurotrophic keratopathy
     Route: 047
     Dates: start: 20231031
  2. BONE DENSITY CALCIUM + D [Concomitant]
  3. ISOSORBIDE DINITRATE [Concomitant]
     Active Substance: ISOSORBIDE DINITRATE
  4. CEQUA [Concomitant]
     Active Substance: CYCLOSPORINE
     Dosage: DROPERETTE
  5. VITAMIN D-400 [Concomitant]
  6. METOPROLOL SUCCINATE [Concomitant]
     Active Substance: METOPROLOL SUCCINATE
  7. LISINOPRIL [Concomitant]
     Active Substance: LISINOPRIL
  8. ASPIRIN [Concomitant]
     Active Substance: ASPIRIN
  9. SINGULAIR [Concomitant]
     Active Substance: MONTELUKAST SODIUM
  10. GABAPENTIN [Concomitant]
     Active Substance: GABAPENTIN
  11. METFORMIN HYDROCHLORIDE [Concomitant]
     Active Substance: METFORMIN HYDROCHLORIDE
  12. OZEMPIC [Concomitant]
     Active Substance: SEMAGLUTIDE
     Dosage: 0.25 MG OR 0.5MG, PEN INJECTOR
  13. HUMALOG [Concomitant]
     Active Substance: INSULIN LISPRO
     Dosage: CARTRIDGE
  14. BASAGLAR [Concomitant]
     Active Substance: INSULIN GLARGINE
     Dosage: KWIKPEN

REACTIONS (2)
  - Eye irritation [Unknown]
  - Lacrimation increased [Unknown]
